FAERS Safety Report 4721839-9 (Version None)
Quarter: 2005Q3

REPORT INFORMATION
  Report Type: 
  Country: None (occurrence: None)
  Receive Date: 20050721
  Receipt Date: 20050502
  Transmission Date: 20060218
  Serious: No
  Sender: FDA-Public Use
  Company Number: US-BRISTOL-MYERS SQUIBB COMPANY-12958617

PATIENT
  Age: 74 Year
  Sex: Female
  Weight: 65 kg

DRUGS (2)
  1. COUMADIN [Suspect]
     Indication: CEREBROVASCULAR ACCIDENT
     Dosage: WAS ON 3 MG DAILY; INCREASED TO 4 MG DAILY ON 01-MAY-2005
     Route: 048
     Dates: start: 20020101
  2. COUMADIN [Suspect]
     Indication: TRANSIENT ISCHAEMIC ATTACK
     Dosage: WAS ON 3 MG DAILY; INCREASED TO 4 MG DAILY ON 01-MAY-2005
     Route: 048
     Dates: start: 20020101

REACTIONS (3)
  - ASTHENIA [None]
  - CHILLS [None]
  - FLUSHING [None]
